FAERS Safety Report 5061250-7 (Version None)
Quarter: 2006Q3

REPORT INFORMATION
  Report Type: 
  Country: None (occurrence: None)
  Receive Date: 20060721
  Receipt Date: 20060721
  Transmission Date: 20061208
  Serious: Yes (Other)
  Sender: FDA-Public Use
  Company Number: None

PATIENT
  Age: 64 Year
  Sex: Female
  Weight: 77.1115 kg

DRUGS (2)
  1. PEPCID [Suspect]
     Indication: GASTROOESOPHAGEAL REFLUX DISEASE
     Dosage: INTERMITTENT PO   PRIOR TO 1-14
     Route: 048
     Dates: start: 20060114, end: 20060130
  2. PRILOSEC [Suspect]
     Indication: GASTROOESOPHAGEAL REFLUX DISEASE
     Dosage: 20 MG Q DAY
     Dates: start: 20060128

REACTIONS (4)
  - ACUTE GENERALISED EXANTHEMATOUS PUSTULOSIS [None]
  - IMPAIRED HEALING [None]
  - LEUKOCYTOCLASTIC VASCULITIS [None]
  - SKIN ULCER [None]
